FAERS Safety Report 16766293 (Version 3)
Quarter: 2020Q1

REPORT INFORMATION
  Report Type: Spontaneous
  Country: JP (occurrence: JP)
  Receive Date: 20190903
  Receipt Date: 20200110
  Transmission Date: 20200409
  Serious: Yes (Death, Disabling, Other)
  Sender: FDA-Public Use
  Company Number: JP-PFIZER INC-2019281386

PATIENT
  Age: 23 Month
  Sex: Female

DRUGS (1)
  1. GENOTROPIN GOQUICK 5.3MG [Suspect]
     Active Substance: SOMATROPIN
     Indication: BODY HEIGHT BELOW NORMAL
     Dosage: 0.25 MG, 1X/DAY
     Route: 058
     Dates: start: 20181025, end: 20190527

REACTIONS (4)
  - Congenital cystic kidney disease [Fatal]
  - Blood parathyroid hormone increased [Unknown]
  - Infection [Fatal]
  - Resorption bone increased [Unknown]

NARRATIVE: CASE EVENT DATE: 20190527
